FAERS Safety Report 10968335 (Version 1)
Quarter: 2015Q1

REPORT INFORMATION
  Report Type: Spontaneous
  Country: US (occurrence: US)
  Receive Date: 20150330
  Receipt Date: 20150330
  Transmission Date: 20150721
  Serious: No
  Sender: FDA-Public Use
  Company Number: US-ELI_LILLY_AND_COMPANY-US201503001704

PATIENT
  Age: 69 Year
  Sex: Male

DRUGS (3)
  1. VALACICLOVIR [Concomitant]
     Active Substance: VALACYCLOVIR HYDROCHLORIDE
     Dosage: UNK
  2. CIALIS [Suspect]
     Active Substance: TADALAFIL
     Indication: MICTURITION URGENCY
     Dosage: 5 MG, QD
     Dates: start: 20150204, end: 20150302
  3. LOSTATIN [Concomitant]

REACTIONS (3)
  - Off label use [Unknown]
  - Libido disorder [Not Recovered/Not Resolved]
  - Abdominal distension [Not Recovered/Not Resolved]

NARRATIVE: CASE EVENT DATE: 20150206
